FAERS Safety Report 8217673-8 (Version None)
Quarter: 2012Q1

REPORT INFORMATION
  Report Type: 
  Country: None (occurrence: None)
  Receive Date: 20120314
  Receipt Date: 20120227
  Transmission Date: 20120608
  Serious: Yes (Hospitalization)
  Sender: FDA-Public Use
  Company Number: BE_TT-12_00001

PATIENT
  Sex: Male

DRUGS (1)
  1. DEXRAZOXANE HYDROCHLORIDE [Suspect]
     Indication: EXTRAVASATION
     Dosage: NOT REPORTED
     Dates: start: 20120125, end: 20120203

REACTIONS (14)
  - INFUSION SITE EXTRAVASATION [None]
  - INFUSION SITE NECROSIS [None]
  - LYMPHOEDEMA [None]
  - OEDEMA [None]
  - MUCOSAL INFLAMMATION [None]
  - INJECTION SITE ULCER [None]
  - SEPSIS [None]
  - CONSTIPATION [None]
  - NEUTROPENIA [None]
  - PNEUMONIA [None]
  - URINARY RETENTION [None]
  - INFUSION SITE PAIN [None]
  - OEDEMA PERIPHERAL [None]
  - CAPILLARY LEAK SYNDROME [None]
